FAERS Safety Report 25447938 (Version 1)
Quarter: 2025Q2

REPORT INFORMATION
  Report Type: Spontaneous
  Country: US (occurrence: US)
  Receive Date: 20250617
  Receipt Date: 20250617
  Transmission Date: 20250717
  Serious: Yes (Other)
  Sender: ANI
  Company Number: US-ANIPHARMA-2025-US-027667

PATIENT
  Age: 70 Year
  Sex: Female
  Weight: 58.51 kg

DRUGS (21)
  1. CORTICOTROPIN [Suspect]
     Active Substance: CORTICOTROPIN
     Indication: Rheumatoid arthritis
     Route: 058
     Dates: start: 202505
  2. ADBRY [Concomitant]
     Active Substance: TRALOKINUMAB-LDRM
  3. REMICADE [Concomitant]
     Active Substance: INFLIXIMAB
  4. PREDNISONE [Concomitant]
     Active Substance: PREDNISONE
  5. POTASSIUM/HYDROC B12 [Concomitant]
  6. LOSARTAN [Concomitant]
     Active Substance: LOSARTAN
  7. CARVEDILOL [Concomitant]
     Active Substance: CARVEDILOL
  8. AMLODIPINE BESYLATE [Concomitant]
     Active Substance: AMLODIPINE BESYLATE
  9. GOODS [Concomitant]
  10. B-COMPLEX/VITAMIN C [Concomitant]
  11. POTASSIUM CHLORIDE [Concomitant]
     Active Substance: POTASSIUM CHLORIDE
  12. CLARITIN [Concomitant]
     Active Substance: LORATADINE
  13. OXYBUTYNIN CHLORIDE [Concomitant]
     Active Substance: OXYBUTYNIN CHLORIDE
  14. OXYBUTYNIN CL E [Concomitant]
  15. MONTELUKAST SODIUM [Concomitant]
     Active Substance: MONTELUKAST SODIUM
  16. B6 NATURAL [Concomitant]
  17. LEUCOVORIN [Concomitant]
     Active Substance: LEUCOVORIN\LEUCOVORIN CALCIUM
  18. CALCIUM [Concomitant]
     Active Substance: CALCIUM
  19. FAMOTIDINE [Concomitant]
     Active Substance: FAMOTIDINE
  20. ITRACONAZOLE [Concomitant]
     Active Substance: ITRACONAZOLE
  21. LEFLUNOMIDE [Concomitant]
     Active Substance: LEFLUNOMIDE

REACTIONS (2)
  - Toe amputation [Unknown]
  - Contraindicated product administered [Unknown]

NARRATIVE: CASE EVENT DATE: 20250501
